FAERS Safety Report 10516681 (Version 2)
Quarter: 2014Q4

REPORT INFORMATION
  Report Type: Spontaneous
  Country: JP (occurrence: JP)
  Receive Date: 20141014
  Receipt Date: 20141014
  Transmission Date: 20150528
  Serious: Yes (Other)
  Sender: FDA-Public Use
  Company Number: JP-GLAXOSMITHKLINE-A201410905

PATIENT
  Age: 82 Year
  Sex: Male

DRUGS (9)
  1. SIGMART [Concomitant]
     Active Substance: NICORANDIL
     Route: 065
  2. VALACICLOVIR HYDROCHLORIDE [Suspect]
     Active Substance: VALACYCLOVIR HYDROCHLORIDE
     Indication: HERPES ZOSTER
     Route: 048
     Dates: start: 20140916, end: 20140920
  3. KETAS [Concomitant]
     Active Substance: IBUDILAST
     Route: 065
  4. NITROPEN [Concomitant]
     Active Substance: NITROGLYCERIN
     Route: 060
  5. CONIEL [Concomitant]
     Active Substance: BENIDIPINE HYDROCHLORIDE
     Route: 048
  6. BUFFERIN 330MG [Concomitant]
     Route: 048
  7. FLIVAS [Concomitant]
     Active Substance: NAFTOPIDIL
     Route: 048
  8. AVOLVE [Concomitant]
     Active Substance: DUTASTERIDE
     Route: 048
  9. AGENTS FOR OPHTHALMIC USE [Concomitant]
     Indication: GLAUCOMA
     Route: 031

REACTIONS (2)
  - Glaucoma [Unknown]
  - Abnormal sensation in eye [Unknown]

NARRATIVE: CASE EVENT DATE: 20140916
